FAERS Safety Report 6640388-4 (Version None)
Quarter: 2010Q1

REPORT INFORMATION
  Report Type: 
  Country: None (occurrence: None)
  Receive Date: 20100318
  Receipt Date: 20100312
  Transmission Date: 20100710
  Serious: Yes (Other)
  Sender: FDA-Public Use
  Company Number: US-BAYER-201013035BCC

PATIENT
  Age: 80 Year
  Sex: Female

DRUGS (5)
  1. ASPIRIN [Suspect]
     Indication: THROMBOSIS PROPHYLAXIS
     Route: 048
     Dates: start: 20060101, end: 20090101
  2. ASPIRIN [Suspect]
     Route: 048
     Dates: start: 20091201
  3. PLAVIX [Suspect]
     Indication: THROMBOSIS PROPHYLAXIS
     Route: 048
     Dates: start: 20060101
  4. OMEPRAZOLE [Concomitant]
     Indication: GASTROOESOPHAGEAL REFLUX DISEASE
     Route: 065
     Dates: end: 20090101
  5. PANTOPRAZOLE [Concomitant]
     Indication: GASTROOESOPHAGEAL REFLUX DISEASE
     Route: 065
     Dates: start: 20090101

REACTIONS (3)
  - CONTUSION [None]
  - CORONARY ARTERY OCCLUSION [None]
  - POST PROCEDURAL HAEMORRHAGE [None]
